FAERS Safety Report 7774898-3 (Version None)
Quarter: 2011Q3

REPORT INFORMATION
  Report Type: 
  Country: None (occurrence: None)
  Receive Date: 20110921
  Receipt Date: 20110905
  Transmission Date: 20111222
  Serious: Yes (Death, Other)
  Sender: FDA-Public Use
  Company Number: FK201101866

PATIENT
  Age: 44 Year
  Sex: Male

DRUGS (3)
  1. CELLCEPT [Suspect]
     Indication: PROPHYLAXIS
  2. METHYLPREDNISOLONE [Suspect]
     Indication: STEROID THERAPY
  3. TACROLIMUS [Suspect]
     Indication: PROPHYLAXIS

REACTIONS (4)
  - ANGIOSARCOMA [None]
  - METASTASES TO LUNG [None]
  - ARTERIOVENOUS FISTULA SITE COMPLICATION [None]
  - SKIN PAPILLOMA [None]
